FAERS Safety Report 13842393 (Version 1)
Quarter: 2017Q3

REPORT INFORMATION
  Report Type: Spontaneous
  Country: US (occurrence: US)
  Receive Date: 20170807
  Receipt Date: 20170807
  Transmission Date: 20171127
  Serious: Yes (Other)
  Sender: FDA-Public Use
  Company Number: None

PATIENT
  Sex: Female

DRUGS (1)
  1. QUTENZA [Suspect]
     Active Substance: CAPSAICIN
     Indication: NECK PAIN
     Route: 061

REACTIONS (2)
  - Intercepted medication error [None]
  - Drug prescribing error [None]

NARRATIVE: CASE EVENT DATE: 20170804
